FAERS Safety Report 10234594 (Version 1)
Quarter: 2014Q2

REPORT INFORMATION
  Report Type: Spontaneous
  Country: DE (occurrence: DE)
  Receive Date: 20140613
  Receipt Date: 20140613
  Transmission Date: 20141212
  Serious: Yes (Hospitalization, Other)
  Sender: FDA-Public Use
  Company Number: DE-AMGEN INC.-DEUSP2014043819

PATIENT
  Sex: Female

DRUGS (3)
  1. ENBREL [Suspect]
     Indication: PRODUCT USED FOR UNKNOWN INDICATION
     Dosage: 50 MG, WEEKLY
     Route: 065
  2. METHOTREXAT                        /00113801/ [Concomitant]
     Dosage: UNK
  3. IBUPROFEN [Concomitant]
     Dosage: 600 MG, AS NEEDED

REACTIONS (1)
  - Atrial fibrillation [Recovered/Resolved]
